FAERS Safety Report 15239004 (Version 1)
Quarter: 2018Q3

REPORT INFORMATION
  Report Type: Report from Study
  Country: US (occurrence: US)
  Receive Date: 20180803
  Receipt Date: 20180803
  Transmission Date: 20181010
  Serious: Yes (Hospitalization, Other)
  Sender: FDA-Public Use
  Company Number: US-SAKK-2018SA167595AA

PATIENT
  Age: 75 Year
  Sex: Female

DRUGS (2)
  1. ALIROCUMAB [Suspect]
     Active Substance: ALIROCUMAB
     Indication: TYPE IIA HYPERLIPIDAEMIA
  2. ALIROCUMAB [Suspect]
     Active Substance: ALIROCUMAB
     Indication: BLOOD CHOLESTEROL INCREASED
     Dosage: 75 MG, QOW
     Route: 058
     Dates: start: 20180426

REACTIONS (7)
  - Fall [Unknown]
  - Renal pain [Unknown]
  - Balance disorder [Unknown]
  - Cataract [Unknown]
  - Vision blurred [Unknown]
  - Renal disorder [Unknown]
  - Renal mass [Unknown]

NARRATIVE: CASE EVENT DATE: 201806
